FAERS Safety Report 20255075 (Version 1)
Quarter: 2021Q4

REPORT INFORMATION
  Report Type: Report from Study
  Country: HR (occurrence: HR)
  Receive Date: 20211230
  Receipt Date: 20211230
  Transmission Date: 20220303
  Serious: Yes (Death, Other)
  Sender: FDA-Public Use
  Company Number: HR-JNJFOC-20211259133

PATIENT

DRUGS (5)
  1. REMICADE [Suspect]
     Active Substance: INFLIXIMAB
     Indication: Spondyloarthropathy
     Route: 042
  2. SIMPONI [Suspect]
     Active Substance: GOLIMUMAB
     Indication: Spondyloarthropathy
     Route: 058
  3. ADALIMUMAB [Suspect]
     Active Substance: ADALIMUMAB
     Indication: Spondyloarthropathy
     Route: 065
  4. ETANERCEPT [Suspect]
     Active Substance: ETANERCEPT
     Indication: Spondyloarthropathy
     Route: 065
  5. CERTOLIZUMAB PEGOL [Suspect]
     Active Substance: CERTOLIZUMAB PEGOL
     Indication: Spondyloarthropathy
     Route: 065

REACTIONS (15)
  - Hepatocellular carcinoma [Fatal]
  - Sepsis [Fatal]
  - Arthritis bacterial [Unknown]
  - Enterocolitis [Unknown]
  - Abdominal abscess [Unknown]
  - Liver abscess [Unknown]
  - Pneumonia necrotising [Unknown]
  - Osteomyelitis [Unknown]
  - Cellulitis [Unknown]
  - Tuberculous pleurisy [Unknown]
  - Upper respiratory tract infection bacterial [Unknown]
  - Bronchitis [Unknown]
  - Herpes zoster [Unknown]
  - Abscess [Unknown]
  - Urinary tract infection [Unknown]
